FAERS Safety Report 5892398-2 (Version None)
Quarter: 2008Q3

REPORT INFORMATION
  Report Type: 
  Country: None (occurrence: None)
  Receive Date: 20080919
  Receipt Date: 20080919
  Transmission Date: 20090109
  Serious: Yes (Other)
  Sender: FDA-Public Use
  Company Number: None

PATIENT
  Age: 41 Year
  Sex: Female
  Weight: 67.586 kg

DRUGS (6)
  1. OCELLA BARR [Suspect]
     Indication: CONTRACEPTION
     Dosage: ONE TABLET DAILY PO
     Route: 048
     Dates: start: 20080914, end: 20080916
  2. OCELLA BARR [Suspect]
     Indication: ENDOMETRIOSIS
     Dosage: ONE TABLET DAILY PO
     Route: 048
     Dates: start: 20080914, end: 20080916
  3. OCELLA BARR [Suspect]
     Indication: OVARIAN CYST
  4. OCELLA BARR [Suspect]
     Indication: UTERINE POLYP
  5. SYNTHROID [Concomitant]
  6. CLEARISIL [Concomitant]

REACTIONS (12)
  - BUTTERFLY RASH [None]
  - CUSHINGOID [None]
  - DISCOMFORT [None]
  - DYSPNOEA [None]
  - EYELID OEDEMA [None]
  - HYPERSENSITIVITY [None]
  - OROPHARYNGEAL PAIN [None]
  - PHARMACEUTICAL PRODUCT COMPLAINT [None]
  - PRURITUS [None]
  - SINUSITIS [None]
  - SWELLING [None]
  - SWELLING FACE [None]
